FAERS Safety Report 18143990 (Version 1)
Quarter: 2020Q3

REPORT INFORMATION
  Report Type: Spontaneous
  Country: CA (occurrence: CA)
  Receive Date: 20200813
  Receipt Date: 20200813
  Transmission Date: 20201103
  Serious: Yes (Other)
  Sender: FDA-Public Use
  Company Number: CA-TEVA-2020-CA-1813355

PATIENT
  Age: 23 Year
  Sex: Male

DRUGS (2)
  1. CABOZANTINIB S?MALATE [Suspect]
     Active Substance: CABOZANTINIB S-MALATE
     Indication: MEDULLARY THYROID CANCER
     Route: 065
  2. ZOLEDRONIC ACID [Suspect]
     Active Substance: ZOLEDRONIC ACID
     Indication: BONE CANCER METASTATIC

REACTIONS (8)
  - Hypoproteinaemia [Not Recovered/Not Resolved]
  - Thrombocytopenia [Not Recovered/Not Resolved]
  - Hyperkalaemia [Not Recovered/Not Resolved]
  - Off label use [Not Recovered/Not Resolved]
  - Vomiting [Not Recovered/Not Resolved]
  - Microangiopathic haemolytic anaemia [Not Recovered/Not Resolved]
  - Chronic kidney disease [Not Recovered/Not Resolved]
  - Proteinuria [Not Recovered/Not Resolved]
